FAERS Safety Report 4353294-5 (Version None)
Quarter: 2004Q2

REPORT INFORMATION
  Report Type: 
  Country: None (occurrence: None)
  Receive Date: 20040428
  Receipt Date: 20040416
  Transmission Date: 20050107
  Serious: Yes (Hospitalization, Other)
  Sender: FDA-Public Use
  Company Number: 2004-01659

PATIENT
  Age: 72 Year
  Sex: Male

DRUGS (2)
  1. IMMUCYST (BCG - IT (CONNAUGHT)), AVENTIS PASTEUR LTD., LOT NOT REP [Suspect]
     Indication: BLADDER CANCER
     Dosage: 81 MG B. IN, BLADDER
     Dates: start: 20031203, end: 20031219
  2. NAFTOPIDIL [Concomitant]

REACTIONS (2)
  - PNEUMONIA [None]
  - PYREXIA [None]
